FAERS Safety Report 4528826-4 (Version None)
Quarter: 2004Q4

REPORT INFORMATION
  Report Type: 
  Country: None (occurrence: None)
  Receive Date: 20041216
  Receipt Date: 20041129
  Transmission Date: 20050328
  Serious: Yes (Other)
  Sender: FDA-Public Use
  Company Number: 001#1#2004-02337

PATIENT
  Age: 23 Year
  Sex: Female

DRUGS (1)
  1. PAROXAT [Suspect]
     Indication: DEPRESSION
     Dosage: 20MG PER DAY
     Route: 048
     Dates: start: 20041012, end: 20041115

REACTIONS (3)
  - ASTHENOPIA [None]
  - DEAFNESS [None]
  - PARAESTHESIA [None]
